FAERS Safety Report 18051106 (Version 1)
Quarter: 2020Q3

REPORT INFORMATION
  Report Type: Report from Study
  Country: IN (occurrence: IN)
  Receive Date: 20200721
  Receipt Date: 20200721
  Transmission Date: 20201103
  Serious: Yes (Other)
  Sender: FDA-Public Use
  Company Number: NVSC2019IN065910

PATIENT
  Age: 45 Year
  Sex: Female
  Weight: 65 kg

DRUGS (8)
  1. JARDIANCE [Concomitant]
     Active Substance: EMPAGLIFLOZIN
     Indication: PRODUCT USED FOR UNKNOWN INDICATION
     Route: 065
  2. CETAPIN XR [Concomitant]
     Indication: PRODUCT USED FOR UNKNOWN INDICATION
     Route: 065
  3. INSULIN [Concomitant]
     Active Substance: INSULIN NOS
     Indication: PRODUCT USED FOR UNKNOWN INDICATION
     Dosage: 24 U, QD, EVERY MORNING
     Route: 065
  4. GALVUS [Suspect]
     Active Substance: VILDAGLIPTIN
     Indication: PRODUCT USED FOR UNKNOWN INDICATION
     Dosage: 1 DF (METFORMIN 1000 MG, VILDAGLIPTIN 50 MG), BID
     Route: 048
     Dates: start: 201910
  5. GALVUS MET [Suspect]
     Active Substance: METFORMIN HYDROCHLORIDE\VILDAGLIPTIN
     Indication: DIABETES MELLITUS
     Dosage: 1 DF, BID (1000 MG METFORMIN, 50 MG VILDAGLIPTIN), SINCE 2 OR 3 MONTHS
     Route: 048
  6. TRESIBA [Concomitant]
     Active Substance: INSULIN DEGLUDEC
     Indication: DIABETES MELLITUS
     Dosage: 16 U, QD
     Route: 058
  7. BIO D3 MAX [Concomitant]
     Indication: PRODUCT USED FOR UNKNOWN INDICATION
     Dosage: UNK, QD
     Route: 048
  8. TRESIBA [Concomitant]
     Active Substance: INSULIN DEGLUDEC
     Dosage: 24 U
     Route: 065

REACTIONS (19)
  - Arthralgia [Not Recovered/Not Resolved]
  - Pain in extremity [Not Recovered/Not Resolved]
  - Stress [Unknown]
  - Malaise [Not Recovered/Not Resolved]
  - Asthenia [Unknown]
  - Dry skin [Unknown]
  - Depressed mood [Unknown]
  - Tremor [Unknown]
  - Neuropathy peripheral [Unknown]
  - Abdominal discomfort [Not Recovered/Not Resolved]
  - Paraesthesia [Unknown]
  - Hypoglycaemia [Unknown]
  - Hunger [Not Recovered/Not Resolved]
  - Sleep disorder [Unknown]
  - Fatigue [Not Recovered/Not Resolved]
  - Hyperglycaemia [Unknown]
  - Feeling abnormal [Unknown]
  - Hyperhidrosis [Unknown]
  - Blood glucose fluctuation [Unknown]

NARRATIVE: CASE EVENT DATE: 20191204
